FAERS Safety Report 6060772-X (Version None)
Quarter: 2009Q1

REPORT INFORMATION
  Report Type: 
  Country: None (occurrence: None)
  Receive Date: 20090202
  Receipt Date: 20090119
  Transmission Date: 20090719
  Serious: Yes (Hospitalization, Other)
  Sender: FDA-Public Use
  Company Number: PHHY2009MX02236

PATIENT
  Sex: Male

DRUGS (3)
  1. EXFORGE [Suspect]
     Indication: HYPERTENSION
     Dosage: 1 TABLET (160/5 MG) PER DAY
     Route: 048
     Dates: start: 20081201, end: 20090101
  2. DIOVAN HCT [Suspect]
     Indication: HYPERTENSION
     Dosage: 1 TABLET (160/25 MG) PER DAY
     Route: 048
     Dates: start: 20030301, end: 20081201
  3. DIOVAN HCT [Suspect]
     Dosage: UNK
     Route: 048
     Dates: start: 20090101

REACTIONS (11)
  - BENIGN PROSTATIC HYPERPLASIA [None]
  - BLOOD PRESSURE FLUCTUATION [None]
  - CARDIAC DISORDER [None]
  - CATHETERISATION CARDIAC [None]
  - DYSURIA [None]
  - HAEMATURIA [None]
  - HYPERTENSION [None]
  - HYPOTENSION [None]
  - PROSTATECTOMY [None]
  - PROSTATIC HAEMORRHAGE [None]
  - URINARY TRACT INFECTION [None]
